FAERS Safety Report 8523199-4 (Version None)
Quarter: 2012Q3

REPORT INFORMATION
  Report Type: 
  Country: None (occurrence: None)
  Receive Date: 20120709
  Receipt Date: 20120622
  Transmission Date: 20120928
  Serious: Yes (Death, Other)
  Sender: FDA-Public Use
  Company Number: ADE 12-068

PATIENT
  Age: 55 Year
  Sex: Female
  Weight: 61.6892 kg

DRUGS (8)
  1. HEPARIN SODIUM [Suspect]
     Indication: AORTIC VALVE REPLACEMENT
     Dosage: NOT SPECIFIED
     Dates: start: 20120524
  2. HEPARIN SODIUM [Suspect]
  3. LASIX [Concomitant]
  4. PROTONIX [Concomitant]
  5. NOVOLOG [Concomitant]
  6. INTRALIPIDS [Concomitant]
  7. DORIBAX [Concomitant]
  8. DIPRIVAN [Concomitant]

REACTIONS (3)
  - THROMBOCYTOPENIA [None]
  - DRY GANGRENE [None]
  - CYANOSIS [None]
